FAERS Safety Report 8826389 (Version 1)
Quarter: 2012Q4

REPORT INFORMATION
  Report Type: 
  Country: FR (occurrence: FR)
  Receive Date: 20121005
  Receipt Date: 20121005
  Transmission Date: 20130627
  Serious: Yes (Hospitalization, Other)
  Sender: FDA-Public Use
  Company Number: PHHY2012FR081503

PATIENT
  Sex: Male
  Weight: 4.06 kg

DRUGS (3)
  1. CLOZAPINE [Suspect]
     Route: 064
  2. CLOZAPINE [Suspect]
     Dosage: 325 mg, daily
     Route: 064
  3. CLOZAPINE [Suspect]
     Dosage: 100 mg, daily
     Route: 064

REACTIONS (7)
  - Gastrointestinal hypomotility [Unknown]
  - Vomiting neonatal [Recovered/Resolved]
  - Intestinal dilatation [Unknown]
  - Abdominal distension [Recovered/Resolved]
  - Feeding disorder neonatal [Unknown]
  - Macrosomia [Unknown]
  - Foetal exposure during pregnancy [Unknown]
